FAERS Safety Report 19695433 (Version 1)
Quarter: 2021Q3

REPORT INFORMATION
  Report Type: Spontaneous
  Country: US (occurrence: US)
  Receive Date: 20210812
  Receipt Date: 20210812
  Transmission Date: 20211014
  Serious: No
  Sender: FDA-Public Use
  Company Number: None

PATIENT
  Age: 63 Year
  Sex: Female

DRUGS (1)
  1. OTEZLA [Suspect]
     Active Substance: APREMILAST
     Indication: PSORIASIS
     Dosage: OTHER DOSE:TAKE 1 TABLET  AS DIRECTED?
     Route: 048
     Dates: start: 201908

REACTIONS (2)
  - Surgery [None]
  - Gastrooesophageal reflux disease [None]
